FAERS Safety Report 21243428 (Version 1)
Quarter: 2022Q3

REPORT INFORMATION
  Report Type: Spontaneous
  Country: US (occurrence: None)
  Receive Date: 20220823
  Receipt Date: 20220823
  Transmission Date: 20221026
  Serious: No
  Sender: FDA-Public Use
  Company Number: 2022A289729

PATIENT
  Age: 51 Year
  Sex: Male

DRUGS (1)
  1. FARXIGA [Suspect]
     Active Substance: DAPAGLIFLOZIN PROPANEDIOL
     Indication: Insulin-requiring type 2 diabetes mellitus
     Route: 048

REACTIONS (2)
  - Abdominal pain [Unknown]
  - Urinary tract infection [Unknown]
